FAERS Safety Report 22116334 (Version 3)
Quarter: 2023Q2

REPORT INFORMATION
  Report Type: Report from Study
  Country: US (occurrence: US)
  Receive Date: 20230320
  Receipt Date: 20230508
  Transmission Date: 20230721
  Serious: Yes (Hospitalization, Other)
  Sender: FDA-Public Use
  Company Number: US-BIOVITRUM-2023-US-01819

PATIENT
  Age: 12 Year
  Sex: Male

DRUGS (2)
  1. KINERET [Suspect]
     Active Substance: ANAKINRA
     Indication: Autoinflammatory disease
     Route: 058
     Dates: start: 20190320
  2. KINERET [Suspect]
     Active Substance: ANAKINRA
     Route: 058
     Dates: start: 201903

REACTIONS (7)
  - Pneumonia [Unknown]
  - Seizure [Unknown]
  - Intentional product misuse [Unknown]
  - Product dose omission issue [Unknown]
  - Rhinovirus infection [Unknown]
  - Scoliosis [Unknown]
  - Hypercapnia [Unknown]

NARRATIVE: CASE EVENT DATE: 20190320
